FAERS Safety Report 24768234 (Version 2)
Quarter: 2025Q1

REPORT INFORMATION
  Report Type: Spontaneous
  Country: DE (occurrence: DE)
  Receive Date: 20241223
  Receipt Date: 20250120
  Transmission Date: 20250408
  Serious: No
  Sender: UCB
  Company Number: DE-UCBSA-2024067278

PATIENT
  Sex: Female

DRUGS (2)
  1. NEUPRO [Suspect]
     Active Substance: ROTIGOTINE
     Indication: Restless legs syndrome
     Route: 062
  2. NEUPRO [Suspect]
     Active Substance: ROTIGOTINE
     Route: 062

REACTIONS (2)
  - Product adhesion issue [Unknown]
  - Product quality issue [Unknown]
